FAERS Safety Report 10151140 (Version 1)
Quarter: 2014Q2

REPORT INFORMATION
  Report Type: Report from Study
  Country: CA (occurrence: CA)
  Receive Date: 20140502
  Receipt Date: 20140502
  Transmission Date: 20141212
  Serious: Yes (Death)
  Sender: FDA-Public Use
  Company Number: CA-BAXTER-2014BAX021201

PATIENT
  Age: 64 Year
  Sex: 0

DRUGS (3)
  1. PROCYTOX (CYCLOPHOSPHAMIDE) 500MG/VIAL [Suspect]
     Indication: BREAST CANCER
     Route: 065
  2. DOXORUBICIN [Suspect]
     Indication: BREAST CANCER
     Route: 065
  3. PACLITAXEL [Suspect]
     Indication: BREAST CANCER
     Route: 065

REACTIONS (1)
  - Myocardial infarction [Fatal]
